FAERS Safety Report 4649816-7 (Version None)
Quarter: 2005Q2

REPORT INFORMATION
  Report Type: 
  Country: None (occurrence: None)
  Receive Date: 20050427
  Receipt Date: 20050413
  Transmission Date: 20051028
  Serious: Yes (Hospitalization, Other)
  Sender: FDA-Public Use
  Company Number: CA-SHR-04-023322

PATIENT
  Age: 44 Year
  Sex: Female

DRUGS (9)
  1. BETASERON [Suspect]
     Indication: RELAPSING-REMITTING MULTIPLE SCLEROSIS
     Dosage: 8 MIU, EVERY 2D, SUBCUTANEOUS
     Route: 058
     Dates: start: 19940313
  2. METOCLOPRAMIDE [Suspect]
     Indication: NAUSEA
     Dosage: 1 TAB (S), 4X/DAY
     Route: 048
  3. BENTYLOL (DICYCLOVERINE HYDROCHLORIDE) [Concomitant]
  4. VENTOLIN HFA [Concomitant]
  5. FLOVENT [Concomitant]
  6. VALPROIC ACID (RATIO-) (VALPROIC ACID) [Concomitant]
  7. CLOBAZAM (RATIO-) (CLOBAZAM) [Concomitant]
  8. RABEPRAZOLE SODIUM [Concomitant]
  9. EMLA CREAM (PRILOCAINE) CREAM [Concomitant]

REACTIONS (18)
  - ASTHENIA [None]
  - BURNING SENSATION [None]
  - CHOLELITHIASIS [None]
  - CONDITION AGGRAVATED [None]
  - CORRECTIVE LENS USER [None]
  - DECREASED APPETITE [None]
  - GASTROOESOPHAGEAL REFLUX DISEASE [None]
  - HAEMANGIOMA [None]
  - HYPOTENSION [None]
  - INJECTION SITE REACTION [None]
  - IRRITABLE BOWEL SYNDROME [None]
  - MULTIPLE SCLEROSIS [None]
  - NAUSEA [None]
  - ORAL INTAKE REDUCED [None]
  - PNEUMONIA [None]
  - POST PROCEDURAL COMPLICATION [None]
  - READING DISORDER [None]
  - WEIGHT DECREASED [None]
